FAERS Safety Report 23430004 (Version 6)
Quarter: 2024Q2

REPORT INFORMATION
  Report Type: Report from Study
  Country: NL (occurrence: NL)
  Receive Date: 20240122
  Receipt Date: 20240527
  Transmission Date: 20240715
  Serious: Yes (Hospitalization, Other)
  Sender: FDA-Public Use
  Company Number: NL-ABBVIE-5593551

PATIENT
  Sex: Male
  Weight: 54 kg

DRUGS (13)
  1. CARBIDOPA\LEVODOPA [Suspect]
     Active Substance: CARBIDOPA\LEVODOPA
     Indication: Parkinson^s disease
     Dosage: MD: 11.5ML, CD: 4.2ML/H, ED: 1.5ML?DURATION TEXT: REMAINS AT 16 HOURS
     Route: 050
     Dates: start: 20230905, end: 20231129
  2. CARBIDOPA\LEVODOPA [Suspect]
     Active Substance: CARBIDOPA\LEVODOPA
     Dosage: MD: 11.5ML, CD: 4.2ML/H, ED: 1.5ML?REMAINS AT 16 HOURS
     Route: 050
     Dates: start: 20240418, end: 20240520
  3. CARBIDOPA\LEVODOPA [Suspect]
     Active Substance: CARBIDOPA\LEVODOPA
     Dosage: MD: 11.5ML, CD: 4.2ML/H, ED: 1.5ML?REMAINS AT 16 HOURS
     Route: 050
     Dates: start: 20240117, end: 20240118
  4. CARBIDOPA\LEVODOPA [Suspect]
     Active Substance: CARBIDOPA\LEVODOPA
     Dosage: MD: 11.5ML, CD: 4.2ML/H, ED: 1.5ML?REMAINS AT 16 HOURS
     Route: 050
     Dates: start: 20231129, end: 20240116
  5. CARBIDOPA\LEVODOPA [Suspect]
     Active Substance: CARBIDOPA\LEVODOPA
     Dosage: MD: 11.5ML, CD: 4.2ML/H, ED: 1.5ML?REMAINS AT 16 HOURS
     Route: 050
     Dates: start: 20240118, end: 20240418
  6. CARBIDOPA\LEVODOPA [Suspect]
     Active Substance: CARBIDOPA\LEVODOPA
     Dosage: MD: 11.5ML, CD: 4.2ML/H, ED: 1.5ML?REMAINS AT 16 HOURS
     Route: 050
     Dates: start: 20240520
  7. METFORMIN [Concomitant]
     Active Substance: METFORMIN HYDROCHLORIDE
     Indication: Type 2 diabetes mellitus
     Dates: start: 20050701
  8. MOVICOLON [Concomitant]
     Active Substance: POLYETHYLENE GLYCOL 3350\POTASSIUM CHLORIDE\SODIUM BICARBONATE\SODIUM CHLORIDE
     Indication: Gastrointestinal motility disorder
  9. METOPROLOL [Concomitant]
     Active Substance: METOPROLOL
     Indication: Product used for unknown indication
     Dates: start: 20200701
  10. CARBIDOPA\LEVODOPA [Concomitant]
     Active Substance: CARBIDOPA\LEVODOPA
     Indication: Parkinson^s disease
     Route: 048
     Dates: start: 20160301, end: 20220419
  11. ENTACAPONE [Concomitant]
     Active Substance: ENTACAPONE
     Indication: Parkinson^s disease
     Route: 048
     Dates: start: 20160301, end: 20220419
  12. BETADINE [Concomitant]
     Active Substance: POVIDONE-IODINE
     Indication: Stoma site inflammation
  13. POLYETHYLENE GLYCOLS [Concomitant]
     Active Substance: POLYETHYLENE GLYCOLS
     Indication: Product used for unknown indication

REACTIONS (26)
  - Shoulder fracture [Recovered/Resolved]
  - Stoma site inflammation [Recovering/Resolving]
  - Pain [Recovering/Resolving]
  - Stoma site discharge [Not Recovered/Not Resolved]
  - Fall [Recovered/Resolved]
  - Loss of personal independence in daily activities [Not Recovered/Not Resolved]
  - Head discomfort [Not Recovered/Not Resolved]
  - Anxiety [Not Recovered/Not Resolved]
  - Respiratory tract infection [Recovering/Resolving]
  - Weight decreased [Recovered/Resolved]
  - Restlessness [Not Recovered/Not Resolved]
  - Dyskinesia [Not Recovered/Not Resolved]
  - Muscle rigidity [Not Recovered/Not Resolved]
  - Memory impairment [Not Recovered/Not Resolved]
  - Unevaluable event [Not Recovered/Not Resolved]
  - Tremor [Not Recovered/Not Resolved]
  - Device issue [Not Recovered/Not Resolved]
  - On and off phenomenon [Not Recovered/Not Resolved]
  - Influenza [Recovering/Resolving]
  - Unevaluable event [Not Recovered/Not Resolved]
  - Initial insomnia [Not Recovered/Not Resolved]
  - Stoma site haemorrhage [Recovering/Resolving]
  - Reduced facial expression [Not Recovered/Not Resolved]
  - General physical health deterioration [Not Recovered/Not Resolved]
  - Blood pressure abnormal [Not Recovered/Not Resolved]
  - Middle insomnia [Not Recovered/Not Resolved]

NARRATIVE: CASE EVENT DATE: 20240101
